FAERS Safety Report 10946348 (Version 1)
Quarter: 2015Q1

REPORT INFORMATION
  Report Type: Spontaneous
  Country: None (occurrence: None)
  Receive Date: 20150226
  Receipt Date: 20150226
  Transmission Date: 20150721
  Serious: No
  Sender: FDA-Public Use
  Company Number: TPA2010A05207

PATIENT
  Age: 59 Year
  Sex: Female
  Weight: 58.51 kg

DRUGS (5)
  1. PERCOCET [Suspect]
     Active Substance: ACETAMINOPHEN\OXYCODONE HYDROCHLORIDE
     Indication: ARTHRITIS
  2. ACETAMINOPHEN (PARACETAMOL) [Concomitant]
     Active Substance: ACETAMINOPHEN
     Indication: PAIN
     Dosage: 6-10 TABLETS PER DAY, PER ORAL
     Route: 048
  3. OXYCODONE [Concomitant]
     Active Substance: OXYCODONE
  4. ULORIC [Suspect]
     Active Substance: FEBUXOSTAT
     Indication: BLOOD URIC ACID INCREASED
     Route: 048
     Dates: start: 20100803, end: 201009
  5. ACETAMINOPHEN (PARACETAMOL) [Concomitant]
     Active Substance: ACETAMINOPHEN
     Indication: ARTHRITIS
     Dosage: 6-10 TABLETS PER DAY, PER ORAL
     Route: 048

REACTIONS (3)
  - Skin ulcer [None]
  - Liver injury [None]
  - Rash pruritic [None]

NARRATIVE: CASE EVENT DATE: 2010
